FAERS Safety Report 8450024-2 (Version None)
Quarter: 2012Q2

REPORT INFORMATION
  Report Type: 
  Country: None (occurrence: None)
  Receive Date: 20120614
  Receipt Date: 20120614
  Transmission Date: 20120825
  Serious: Yes (Other)
  Sender: FDA-Public Use
  Company Number: None

PATIENT
  Sex: Female
  Weight: 96.6162 kg

DRUGS (1)
  1. GAMMAPLEX [Suspect]
     Indication: DEMYELINATING POLYNEUROPATHY
     Dosage: 50GM DAILY X2 DAYS Q2WK IV
     Route: 042
     Dates: start: 20120510, end: 20120607

REACTIONS (3)
  - SWELLING FACE [None]
  - OEDEMA PERIPHERAL [None]
  - WEIGHT INCREASED [None]
